FAERS Safety Report 9609014 (Version 1)
Quarter: 2013Q4

REPORT INFORMATION
  Report Type: Spontaneous
  Country: US (occurrence: US)
  Receive Date: 20131009
  Receipt Date: 20131009
  Transmission Date: 20140711
  Serious: Yes (Other)
  Sender: FDA-Public Use
  Company Number: US-ELI_LILLY_AND_COMPANY-US201310001320

PATIENT
  Age: 59 Year
  Sex: Female

DRUGS (21)
  1. FORTEO [Suspect]
     Indication: OSTEOPOROSIS
     Dosage: UNK, QD
     Dates: start: 201202
  2. FORTEO [Suspect]
     Dosage: UNK, QD
  3. PREDNISONE [Concomitant]
     Dosage: 7.5 MG, QD
  4. HUMIRA [Concomitant]
     Dosage: UNK, OTHER
  5. METHOTREXATE [Concomitant]
     Dosage: 17.5 MG, WEEKLY (1/W)
  6. CELEBREX [Concomitant]
     Dosage: 200 MG, BID
  7. TYLENOL ER [Concomitant]
     Dosage: 1950 MG, QD
  8. TYLENOL ER [Concomitant]
     Dosage: UNK, EACH EVENING
  9. TYLENOL WITH CODEIN #3 [Concomitant]
     Dosage: 1 DF, EACH EVENING
  10. ULTRAM [Concomitant]
     Dosage: 50 MG, PRN
  11. FLEXERIL                           /00428402/ [Concomitant]
     Dosage: 5 MG, OTHER
  12. ZOLOFT [Concomitant]
     Dosage: 250 MG, QD
  13. CLONOPIN [Concomitant]
     Dosage: 1 MG, EACH EVENING
  14. LUNESTA [Concomitant]
     Dosage: 3 MG, EACH EVENING
  15. CITRICAL                           /00751501/ [Concomitant]
     Dosage: UNK
  16. RESTASIS [Concomitant]
     Dosage: UNK, BID
     Route: 047
  17. THERATEARS NUTRITION [Concomitant]
     Dosage: UNK, TID
  18. COSAMINE [Concomitant]
     Dosage: UNK, BID
  19. CENTRUM SILVER                     /01292501/ [Concomitant]
     Dosage: UNK
  20. VIT D [Concomitant]
     Dosage: 400 MG, UNK
  21. FOLIC ACID [Concomitant]
     Dosage: 1600 MG, QD

REACTIONS (11)
  - Lumbar vertebral fracture [Unknown]
  - Thoracic vertebral fracture [Unknown]
  - Dislocation of vertebra [Unknown]
  - Fall [Unknown]
  - Pain [Unknown]
  - Mobility decreased [Unknown]
  - Asthenia [Recovering/Resolving]
  - Drug dose omission [Unknown]
  - Tooth disorder [Recovering/Resolving]
  - Foot fracture [Unknown]
  - Dizziness [Unknown]
